FAERS Safety Report 4780321-3 (Version None)
Quarter: 2005Q3

REPORT INFORMATION
  Report Type: 
  Country: None (occurrence: None)
  Receive Date: 20050926
  Receipt Date: 20050926
  Transmission Date: 20060218
  Serious: Yes (Other)
  Sender: FDA-Public Use
  Company Number: None

PATIENT
  Age: 13 Year
  Sex: Female
  Weight: 35.8342 kg

DRUGS (2)
  1. ALBUTEROL [Suspect]
     Indication: ASTHMA
     Dosage: 0.5ML DAILY + Q4HR PRN INHAL
     Route: 055
  2. XOPENEX [Suspect]
     Indication: ASTHMA
     Dosage: 1 VIAL  DAILY + BID PRN INHAL
     Route: 055

REACTIONS (11)
  - ABDOMINAL DISCOMFORT [None]
  - ABDOMINAL DISTENSION [None]
  - BLADDER CATHETERISATION [None]
  - CONSTIPATION [None]
  - DIARRHOEA [None]
  - IATROGENIC INJURY [None]
  - MEDICATION ERROR [None]
  - TACHYCARDIA [None]
  - TACHYPNOEA [None]
  - URINARY TRACT INFECTION [None]
  - WRONG TECHNIQUE IN DRUG USAGE PROCESS [None]
